FAERS Safety Report 17410201 (Version 1)
Quarter: 2020Q1

REPORT INFORMATION
  Report Type: Spontaneous
  Country: US (occurrence: US)
  Receive Date: 20200212
  Receipt Date: 20200212
  Transmission Date: 20200409
  Serious: Yes (Other)
  Sender: FDA-Public Use
  Company Number: US-SA-2018SA095868

PATIENT
  Age: 53 Year
  Sex: Female

DRUGS (2)
  1. AUBAGIO [Suspect]
     Active Substance: TERIFLUNOMIDE
     Indication: MULTIPLE SCLEROSIS
     Dosage: 14 MG, QD
     Route: 048
     Dates: start: 201712, end: 201912
  2. AMPYRA [Concomitant]
     Active Substance: DALFAMPRIDINE

REACTIONS (5)
  - Drug ineffective [Unknown]
  - Multiple sclerosis relapse [Unknown]
  - Ankle fracture [Unknown]
  - Unevaluable event [Unknown]
  - Fall [Unknown]

NARRATIVE: CASE EVENT DATE: 20180306
